FAERS Safety Report 6742285-2 (Version None)
Quarter: 2010Q2

REPORT INFORMATION
  Report Type: 
  Country: None (occurrence: None)
  Receive Date: 20100526
  Receipt Date: 20100518
  Transmission Date: 20101027
  Serious: Yes (Hospitalization)
  Sender: FDA-Public Use
  Company Number: US-ASTRAZENECA-2010SE22742

PATIENT
  Age: 52 Year
  Sex: Female

DRUGS (3)
  1. SEROQUEL XR [Suspect]
     Indication: MAJOR DEPRESSION
     Dosage: 90 200 MG TABLETS
     Route: 048
  2. CYMBALTA [Concomitant]
  3. LAMICTAL [Concomitant]

REACTIONS (3)
  - OVERDOSE [None]
  - PULMONARY EMBOLISM [None]
  - SUICIDE ATTEMPT [None]
